FAERS Safety Report 23767999 (Version 1)
Quarter: 2024Q2

REPORT INFORMATION
  Report Type: Spontaneous
  Country: US (occurrence: None)
  Receive Date: 20240419
  Receipt Date: 20240419
  Transmission Date: 20240715
  Serious: Yes (Hospitalization, Other)
  Sender: FDA-Public Use
  Company Number: None

PATIENT
  Age: 37 Year
  Sex: Male
  Weight: 78.75 kg

DRUGS (2)
  1. DILAUDID [Suspect]
     Active Substance: HYDROMORPHONE HYDROCHLORIDE
     Indication: Procedural pain
     Dosage: FREQUENCY : AS NEEDED;?
     Route: 042
     Dates: start: 20240414, end: 20240418
  2. ERTAPENEM [Suspect]
     Active Substance: ERTAPENEM
     Indication: Post procedural infection
     Dosage: FREQUENCY : DAILY?
     Route: 042
     Dates: start: 20240414, end: 20240419

REACTIONS (7)
  - Abdominal pain [None]
  - Muscle spasms [None]
  - Nausea [None]
  - Vomiting [None]
  - Retching [None]
  - Pain [None]
  - Somnolence [None]

NARRATIVE: CASE EVENT DATE: 20240416
